FAERS Safety Report 8300289-2 (Version None)
Quarter: 2012Q2

REPORT INFORMATION
  Report Type: 
  Country: None (occurrence: None)
  Receive Date: 20120420
  Receipt Date: 20120418
  Transmission Date: 20120825
  Serious: Yes (Life-Threatening)
  Sender: FDA-Public Use
  Company Number: IT-PFIZER INC-2012021563

PATIENT
  Age: 37 Year
  Sex: Female

DRUGS (1)
  1. CELEBREX [Suspect]
     Indication: BACK PAIN
     Dosage: 400 MG, 1X/DAY
     Route: 048
     Dates: start: 20120114, end: 20120114

REACTIONS (4)
  - LYMPHOCYTOSIS [None]
  - RASH [None]
  - LEUKOCYTOSIS [None]
  - GASTROINTESTINAL DISORDER [None]
